FAERS Safety Report 6556943-6 (Version None)
Quarter: 2010Q1

REPORT INFORMATION
  Report Type: 
  Country: None (occurrence: None)
  Receive Date: 20100128
  Receipt Date: 20100118
  Transmission Date: 20100710
  Serious: Yes (Other)
  Sender: FDA-Public Use
  Company Number: FR-AMGEN-US359844

PATIENT
  Sex: Male

DRUGS (3)
  1. ENBREL [Suspect]
     Indication: ANKYLOSING SPONDYLITIS
     Route: 058
     Dates: start: 20090324
  2. INDOCIN [Concomitant]
     Dosage: UNKNOWN
  3. TOPALGIC [Concomitant]
     Dosage: UNKNOWN

REACTIONS (10)
  - ANKYLOSING SPONDYLITIS [None]
  - BLINDNESS UNILATERAL [None]
  - CONDITION AGGRAVATED [None]
  - CORNEAL GRAFT REJECTION [None]
  - INJECTION SITE ERYTHEMA [None]
  - INJECTION SITE HAEMATOMA [None]
  - INJECTION SITE HYPERSENSITIVITY [None]
  - INJECTION SITE PAIN [None]
  - INTRAOCULAR PRESSURE INCREASED [None]
  - UVEITIS [None]
